FAERS Safety Report 8620741-X (Version None)
Quarter: 2012Q3

REPORT INFORMATION
  Report Type: 
  Country: None (occurrence: None)
  Receive Date: 20120824
  Receipt Date: 20120821
  Transmission Date: 20120928
  Serious: Yes (Death)
  Sender: FDA-Public Use
  Company Number: US-US-EMD SERONO, INC.-7156258

PATIENT
  Sex: Male

DRUGS (1)
  1. REBIF [Suspect]
     Indication: MULTIPLE SCLEROSIS
     Route: 058
     Dates: start: 20050901, end: 20120614

REACTIONS (5)
  - PLATELET COUNT DECREASED [None]
  - METASTASES TO LIVER [None]
  - PANCREATIC CARCINOMA [None]
  - BLOOD BILIRUBIN INCREASED [None]
  - PYREXIA [None]
